FAERS Safety Report 6820856-2 (Version None)
Quarter: 2010Q3

REPORT INFORMATION
  Report Type: 
  Country: None (occurrence: None)
  Receive Date: 20100707
  Receipt Date: 20070614
  Transmission Date: 20110219
  Serious: No
  Sender: FDA-Public Use
  Company Number: US-PFIZER INC-2007030220

PATIENT
  Sex: Female
  Weight: 81.65 kg

DRUGS (4)
  1. ZOLOFT [Suspect]
     Indication: DEPRESSION
     Dates: start: 20070101
  2. TRAZODONE HYDROCHLORIDE [Concomitant]
     Dates: start: 20061001
  3. SEROQUEL [Concomitant]
     Dates: start: 20061001
  4. REQUIP [Concomitant]
     Dates: start: 20061001

REACTIONS (1)
  - DRUG SCREEN FALSE POSITIVE [None]
